FAERS Safety Report 7841891-1 (Version None)
Quarter: 2011Q4

REPORT INFORMATION
  Report Type: 
  Country: None (occurrence: None)
  Receive Date: 20111025
  Receipt Date: 20111020
  Transmission Date: 20120403
  Serious: Yes (Death, Other)
  Sender: FDA-Public Use
  Company Number: PHFR2011GB05267

PATIENT
  Sex: Female

DRUGS (23)
  1. CITALOPRAM HYDROBROMIDE [Concomitant]
     Dosage: 10 MG, QD
     Route: 048
  2. FERROUS SULFATE TAB [Concomitant]
     Dosage: 200 MG, TID
  3. AMOXICILLIN [Concomitant]
     Dosage: 500 MG, TID
  4. FUROSEMIDE [Concomitant]
     Dosage: 20 MG, QD (MORNING)
  5. CITALOPRAM HYDROBROMIDE [Concomitant]
     Dosage: 20 MG, QD
     Route: 048
  6. MOVIPREP [Concomitant]
     Dosage: 1 SACHET/DAY
     Route: 048
  7. SLOW-K [Concomitant]
     Dosage: 100 X 2 TABLET DAILY
  8. ACETAMINOPHEN [Concomitant]
     Dosage: 4000 MG, UNK
  9. VALOID INJECTION [Concomitant]
     Dosage: 1 DF, TID
     Route: 030
  10. LAXIDO ORANGE [Concomitant]
     Dosage: 1 SACHET, QD
  11. SINEMET [Concomitant]
  12. SINEMET CR [Concomitant]
     Dosage: 1/2 TABLET/DAY
     Route: 048
  13. STALEVO 100 [Concomitant]
     Dosage: 5 DF/DAY
  14. FUROSEMIDE [Concomitant]
     Dosage: 40 MG, QD (MORNING)
  15. CLOZARIL [Suspect]
     Indication: PARKINSON'S DISEASE
     Dosage: 25 MG, BID
     Route: 048
     Dates: start: 20110118
  16. DIAZEPAM [Suspect]
  17. CITRIC ACID [Concomitant]
     Dosage: 4 ML, PRN
  18. HYPROMELLOSE [Concomitant]
     Dosage: 1 DF, PRN
  19. MADOPAR [Concomitant]
     Dosage: 125 MG/DAY (MORNING)
     Route: 048
  20. OMEPRAZOLE [Concomitant]
     Dosage: 20 MG/DAY
     Route: 048
  21. EPADERM [Concomitant]
     Dosage: UNK DF, PRN
  22. TRIMETHOPRIM [Concomitant]
     Dosage: 200 MG, BID
  23. DICLOFENAC POTASSIUM [Concomitant]
     Dosage: 50 MG, TID

REACTIONS (11)
  - WHITE BLOOD CELL COUNT INCREASED [None]
  - CEREBROVASCULAR ACCIDENT [None]
  - CARDIAC DISORDER [None]
  - DEMENTIA [None]
  - BLOOD POTASSIUM DECREASED [None]
  - KLEBSIELLA BACTERAEMIA [None]
  - DRUG INEFFECTIVE [None]
  - BLOOD CREATININE INCREASED [None]
  - ASTHENIA [None]
  - GASTROINTESTINAL CARCINOMA [None]
  - NEUTROPHIL COUNT INCREASED [None]
